FAERS Safety Report 4945449-3 (Version None)
Quarter: 2006Q1

REPORT INFORMATION
  Report Type: 
  Country: None (occurrence: None)
  Receive Date: 20060316
  Receipt Date: 20060314
  Transmission Date: 20060701
  Serious: Yes (Hospitalization)
  Sender: FDA-Public Use
  Company Number: BR-GLAXOSMITHKLINE-A0597748A

PATIENT
  Age: 93 Year
  Sex: Male

DRUGS (8)
  1. FONDAPARINUX [Suspect]
     Route: 058
     Dates: start: 20050413
  2. CONTRAST MEDIUM (UNSPECIFIED) [Suspect]
  3. CLOPIDOGREL [Concomitant]
  4. FUROSEMIDE [Concomitant]
  5. METOPROLOL [Concomitant]
  6. STATINS [Concomitant]
  7. CAPTOPRIL [Concomitant]
  8. HEPARIN [Concomitant]

REACTIONS (4)
  - DYSPNOEA [None]
  - HYPOTENSION [None]
  - RALES [None]
  - RENAL FAILURE ACUTE [None]
